FAERS Safety Report 15119165 (Version 1)
Quarter: 2018Q3

REPORT INFORMATION
  Report Type: Spontaneous
  Country: US (occurrence: US)
  Receive Date: 20180709
  Receipt Date: 20180709
  Transmission Date: 20181010
  Serious: No
  Sender: FDA-Public Use
  Company Number: US-ELI_LILLY_AND_COMPANY-US201806010682

PATIENT
  Sex: Female

DRUGS (2)
  1. BASAGLAR [Suspect]
     Active Substance: INSULIN GLARGINE
     Dosage: 65 U, DAILY (AT NIGHT)
     Route: 058
     Dates: start: 201803
  2. BASAGLAR [Suspect]
     Active Substance: INSULIN GLARGINE
     Indication: DIABETES MELLITUS
     Dosage: 70 U, EACH MORNING
     Route: 058
     Dates: start: 201803

REACTIONS (3)
  - Inappropriate schedule of drug administration [Unknown]
  - Blood glucose abnormal [Not Recovered/Not Resolved]
  - Wrong technique in product usage process [Unknown]
